FAERS Safety Report 14654928 (Version 2)
Quarter: 2018Q2

REPORT INFORMATION
  Report Type: Spontaneous
  Country: US (occurrence: US)
  Receive Date: 20180319
  Receipt Date: 20180416
  Transmission Date: 20180711
  Serious: Yes (Hospitalization, Other)
  Sender: FDA-Public Use
  Company Number: US-GLAXOSMITHKLINE-US2018044921

PATIENT
  Age: 74 Year
  Sex: Female

DRUGS (17)
  1. ADVAIR HFA [Suspect]
     Active Substance: FLUTICASONE PROPIONATE\SALMETEROL XINAFOATE
     Indication: ASTHMA
     Dosage: 2 PUFF(S), BID
     Route: 055
     Dates: start: 2016
  2. METOPROLOL XL [Concomitant]
     Active Substance: METOPROLOL SUCCINATE
  3. CALCIUM [Concomitant]
     Active Substance: CALCIUM
  4. MESALAMINE. [Concomitant]
     Active Substance: MESALAMINE
  5. OMEPRAZOLE. [Concomitant]
     Active Substance: OMEPRAZOLE
  6. PREDNISONE. [Concomitant]
     Active Substance: PREDNISONE
  7. VITAMIN B12 [Concomitant]
     Active Substance: CYANOCOBALAMIN
  8. VITAMIN D3 [Concomitant]
     Active Substance: CHOLECALCIFEROL
  9. FLUTICASONE. [Concomitant]
     Active Substance: FLUTICASONE
  10. ASPIRIN. [Concomitant]
     Active Substance: ASPIRIN
  11. AZELASTINE. [Concomitant]
     Active Substance: AZELASTINE HYDROCHLORIDE
  12. COCONUT OIL [Concomitant]
     Active Substance: COCONUT OIL
  13. FAMOTIDINE. [Concomitant]
     Active Substance: FAMOTIDINE
  14. LEVOTHYROXINE. [Concomitant]
     Active Substance: LEVOTHYROXINE
  15. NIFEDIPINE. [Concomitant]
     Active Substance: NIFEDIPINE
  16. OXAZEPAM. [Concomitant]
     Active Substance: OXAZEPAM
  17. PRAVASTATIN. [Concomitant]
     Active Substance: PRAVASTATIN

REACTIONS (4)
  - Intestinal ulcer [Recovering/Resolving]
  - Dysphonia [Not Recovered/Not Resolved]
  - Gastrointestinal disorder [Recovering/Resolving]
  - Anal haemorrhage [Recovering/Resolving]

NARRATIVE: CASE EVENT DATE: 201803
